FAERS Safety Report 9470523 (Version 2)
Quarter: 2014Q1

REPORT INFORMATION
  Report Type: Spontaneous
  Country: JP (occurrence: None)
  Receive Date: 20130815
  Receipt Date: 20140321
  Transmission Date: 20141002
  Serious: Yes (Hospitalization)
  Sender: FDA-Public Use
  Company Number: ABR_01068_2013

PATIENT
  Age: 58 Year
  Sex: Female
  Weight: 47.3 kg

DRUGS (6)
  1. GLIADEL [Suspect]
     Indication: MALIGNANT GLIOMA
     Dosage: INTRACEREBRAL
     Dates: start: 20130415, end: 20130415
  2. TEMODAL [Suspect]
     Indication: MALIGNANT GLIOMA
     Route: 048
     Dates: start: 20130225, end: 20130228
  3. NIDRAN [Suspect]
     Indication: MALIGNANT GLIOMA
     Dosage: NOT OTHERWISE SPECIFIED
     Route: 042
     Dates: start: 20130319, end: 20130319
  4. IFOMIDE [Concomitant]
  5. LASTET [Concomitant]
  6. PARAPLATIN [Concomitant]

REACTIONS (1)
  - White blood cell count decreased [None]
